FAERS Safety Report 4860683-9 (Version None)
Quarter: 2005Q4

REPORT INFORMATION
  Report Type: 
  Country: None (occurrence: None)
  Receive Date: 20051216
  Receipt Date: 20051130
  Transmission Date: 20060501
  Serious: Yes (Other)
  Sender: FDA-Public Use
  Company Number: US200512000114

PATIENT
  Age: 17 Year
  Sex: Male

DRUGS (1)
  1. PROZAC [Suspect]
     Indication: IRRITABILITY
     Dosage: 20 MG, DAILY (1/D)

REACTIONS (5)
  - ATTENTION DEFICIT/HYPERACTIVITY DISORDER [None]
  - CONCUSSION [None]
  - PARTIAL SEIZURES [None]
  - POST CONCUSSION SYNDROME [None]
  - TREMOR [None]
